FAERS Safety Report 14604261 (Version 3)
Quarter: 2018Q2

REPORT INFORMATION
  Report Type: Report from Study
  Country: CA (occurrence: CA)
  Receive Date: 20180306
  Receipt Date: 20180529
  Transmission Date: 20180711
  Serious: Yes (Hospitalization, Other)
  Sender: FDA-Public Use
  Company Number: CA-JNJFOC-20180301192

PATIENT
  Age: 23 Year
  Sex: Male
  Weight: 92.25 kg

DRUGS (1)
  1. STELARA [Suspect]
     Active Substance: USTEKINUMAB
     Indication: PSORIASIS
     Route: 058
     Dates: start: 20171201

REACTIONS (4)
  - Splinter [Unknown]
  - Pharyngitis streptococcal [Unknown]
  - Necrotising fasciitis [Unknown]
  - Cellulitis streptococcal [Unknown]

NARRATIVE: CASE EVENT DATE: 201802
